FAERS Safety Report 10045325 (Version 2)
Quarter: 2014Q2

REPORT INFORMATION
  Report Type: Spontaneous
  Country: JP (occurrence: JP)
  Receive Date: 20140328
  Receipt Date: 20140401
  Transmission Date: 20141212
  Serious: Yes (Other)
  Sender: FDA-Public Use
  Company Number: JP-JNJFOC-20140313736

PATIENT
  Age: 77 Year
  Sex: Male

DRUGS (7)
  1. XARELTO [Suspect]
     Indication: CEREBROVASCULAR ACCIDENT PROPHYLAXIS
     Route: 048
     Dates: start: 201208
  2. XARELTO [Suspect]
     Indication: ATRIAL FIBRILLATION
     Route: 048
     Dates: start: 201208
  3. SUNRYTHM [Concomitant]
     Route: 048
  4. MAINTATE [Concomitant]
     Route: 048
  5. BIO-THREE [Concomitant]
     Route: 048
  6. PHELLOBERIN [Concomitant]
     Route: 048
  7. GASCON [Concomitant]
     Route: 048

REACTIONS (1)
  - Pulmonary fibrosis [Recovered/Resolved]
